FAERS Safety Report 14973376 (Version 1)
Quarter: 2018Q2

REPORT INFORMATION
  Report Type: Spontaneous
  Country: AU (occurrence: AU)
  Receive Date: 20180605
  Receipt Date: 20180605
  Transmission Date: 20180711
  Serious: Yes (Other)
  Sender: FDA-Public Use
  Company Number: PHHY2018AU013953

PATIENT
  Sex: Female

DRUGS (4)
  1. MAGNESIUM SULPHATE [Suspect]
     Active Substance: MAGNESIUM SULFATE
     Indication: FOETAL EXPOSURE DURING PREGNANCY
     Dosage: MATERNAL DOSE UNK
     Route: 064
  2. BETAMETHASONE. [Suspect]
     Active Substance: BETAMETHASONE
     Indication: FOETAL EXPOSURE DURING PREGNANCY
     Dosage: MATERNAL DOSE 2 DOSES
     Route: 064
  3. SILDENAFIL. [Suspect]
     Active Substance: SILDENAFIL
     Indication: FOETAL EXPOSURE DURING PREGNANCY
     Dosage: MATERNAL DOSE 50 MG TID
     Route: 064
  4. LABETALOL [Suspect]
     Active Substance: LABETALOL\LABETALOL HYDROCHLORIDE
     Indication: FOETAL EXPOSURE DURING PREGNANCY
     Dosage: MATERNAL DOSE 200 MG BID LATER 200 MG TID
     Route: 064

REACTIONS (6)
  - Urosepsis [Recovered/Resolved]
  - Foetal exposure during pregnancy [Unknown]
  - Bronchopulmonary dysplasia [Recovered/Resolved]
  - Neonatal respiratory distress syndrome [Recovered/Resolved]
  - Low birth weight baby [Unknown]
  - Premature baby [Unknown]
